FAERS Safety Report 9025128 (Version 4)
Quarter: 2013Q4

REPORT INFORMATION
  Report Type: Spontaneous
  Country: US (occurrence: US)
  Receive Date: 20130122
  Receipt Date: 20131002
  Transmission Date: 20140711
  Serious: Yes (Life-Threatening, Hospitalization, Other)
  Sender: FDA-Public Use
  Company Number: US-009507513-2010SP041567

PATIENT
  Sex: Female
  Weight: 81.63 kg

DRUGS (4)
  1. NUVARING [Suspect]
     Indication: CONTRACEPTION
     Dosage: 0.120 MG/0.015 MG/DAY, QM
     Route: 067
     Dates: start: 20060101, end: 20100610
  2. AVONEX [Concomitant]
     Indication: IMMUNOMODULATORY THERAPY
     Dosage: 30 MG, QW
     Dates: start: 2000
  3. CHOLECALCIFEROL [Concomitant]
     Indication: PRODUCT USED FOR UNKNOWN INDICATION
  4. CALCIUM (UNSPECIFIED) [Concomitant]
     Indication: PRODUCT USED FOR UNKNOWN INDICATION

REACTIONS (23)
  - Subdural haematoma [Recovering/Resolving]
  - Pulmonary embolism [Recovering/Resolving]
  - Cerebral thrombosis [Unknown]
  - Fall [Recovered/Resolved]
  - Head injury [Recovered/Resolved]
  - Deep vein thrombosis [Not Recovered/Not Resolved]
  - Hand fracture [Unknown]
  - Craniotomy [Recovering/Resolving]
  - Hypertension [Unknown]
  - Antiphospholipid antibodies positive [Unknown]
  - Tachycardia [Unknown]
  - Right ventricular dysfunction [Unknown]
  - Pulmonary infarction [Unknown]
  - Hyperlipidaemia [Unknown]
  - Drug hypersensitivity [Unknown]
  - Myocardial infarction [Unknown]
  - Hypotension [Unknown]
  - Pulmonary hypertension [Unknown]
  - Open reduction of fracture [Unknown]
  - Venous thrombosis [Unknown]
  - Dyspnoea [Unknown]
  - Depression [Unknown]
  - Blood cholesterol increased [Unknown]
